FAERS Safety Report 10452663 (Version 3)
Quarter: 2014Q4

REPORT INFORMATION
  Report Type: Spontaneous
  Country: US (occurrence: US)
  Receive Date: 20140915
  Receipt Date: 20141210
  Transmission Date: 20150528
  Serious: No
  Sender: FDA-Public Use
  Company Number: US-PFIZER INC-2014252355

PATIENT
  Age: 66 Year
  Sex: Female

DRUGS (5)
  1. INLYTA [Suspect]
     Active Substance: AXITINIB
     Dosage: 1 MG, UNK
     Route: 048
     Dates: start: 20131230
  2. INLYTA [Suspect]
     Active Substance: AXITINIB
     Indication: RENAL CANCER
     Dosage: 1 MG, 3X/DAY
     Route: 048
     Dates: start: 20130926
  3. ACETONEL [Concomitant]
     Active Substance: RISEDRONATE SODIUM
     Dosage: 35 MG, UNK
     Route: 048
  4. LANTUS [Concomitant]
     Active Substance: INSULIN GLARGINE
  5. Q PAP [Concomitant]
     Dosage: 500 MG, UNK
     Route: 048

REACTIONS (3)
  - Renal cancer [Unknown]
  - Dry mouth [Unknown]
  - Disease progression [Unknown]

NARRATIVE: CASE EVENT DATE: 20140818
